FAERS Safety Report 9123612 (Version 1)
Quarter: 2013Q1

REPORT INFORMATION
  Report Type: Spontaneous
  Country: JP (occurrence: JP)
  Receive Date: 20130115
  Receipt Date: 20130115
  Transmission Date: 20140127
  Serious: Yes (Hospitalization, Disabling)
  Sender: FDA-Public Use
  Company Number: JP-009507513-2011SP040432

PATIENT
  Age: 72 Year
  Sex: Male
  Weight: 50 kg

DRUGS (12)
  1. PEG-INTRON [Suspect]
     Indication: CHRONIC HEPATITIS C
     Dosage: 80 ?G, QW
     Route: 058
     Dates: start: 20110510, end: 20110517
  2. REBETOL [Suspect]
     Indication: CHRONIC HEPATITIS C
     Dosage: 200 MG AFTER BREAKFAST, 400 MG AFTER DINNER
     Route: 048
     Dates: start: 20110510, end: 20110526
  3. AMARYL [Concomitant]
     Indication: BLOOD GLUCOSE INCREASED
     Dosage: DIVIDED DOSE FREQUENCY UNKNOWN
     Route: 048
     Dates: start: 2006
  4. EXCEGRAN [Concomitant]
     Indication: CONVULSION
     Dosage: DIVIDED DOSE FREQUENCY UNKNOWN
     Route: 048
     Dates: start: 2006
  5. NORVASC [Concomitant]
     Indication: BLOOD PRESSURE INCREASED
     Dosage: DIVIDED DOSE FREQUENCY UNKNOWN
     Route: 048
     Dates: start: 2006
  6. PLETAAL [Concomitant]
     Indication: PROPHYLAXIS
     Dosage: DIVIDED DOSE FREQUENCY UNKNOWN
     Route: 048
     Dates: start: 2006
  7. RIVOTRIL [Concomitant]
     Indication: CONVULSION
     Dosage: DIVIDED DOSE FREQUENCY UNKNOWN
     Route: 048
     Dates: start: 2006
  8. DEPAS [Concomitant]
     Indication: ANXIETY
     Dosage: DIVIDED DOSE FREQUENCY UNKNOWN
     Route: 048
     Dates: start: 2006
  9. CONIEL [Concomitant]
     Indication: BLOOD PRESSURE INCREASED
     Dosage: DIVIDED DOSE FREQUENCY UNKNOWN
     Route: 048
     Dates: start: 2006
  10. MUCOSTA [Concomitant]
     Indication: PROPHYLAXIS
     Dosage: DIVIDED DOSE FREQUENCY UNKNOWN
     Route: 048
     Dates: start: 2006
  11. URSO [Concomitant]
     Indication: PROPHYLAXIS
     Dosage: DIVIDED DOSE FREQUENCY UNKNOWN
     Route: 048
     Dates: start: 2006, end: 2006
  12. GLYCYRON [Concomitant]
     Indication: PROPHYLAXIS
     Dosage: DIVIDED DOSE FREQUENCY UNKNOWN
     Route: 048
     Dates: start: 2006

REACTIONS (2)
  - Type 1 diabetes mellitus [Not Recovered/Not Resolved]
  - Hyperglycaemia [Not Recovered/Not Resolved]
